FAERS Safety Report 5074664-6 (Version None)
Quarter: 2006Q3

REPORT INFORMATION
  Report Type: 
  Country: None (occurrence: None)
  Receive Date: 20060803
  Receipt Date: 20060724
  Transmission Date: 20061208
  Serious: Yes (Other)
  Sender: FDA-Public Use
  Company Number: 2006092324

PATIENT
  Age: 65 Year
  Sex: Female
  Weight: 86.1834 kg

DRUGS (18)
  1. ZOLOFT [Suspect]
     Indication: DEPRESSION
     Dosage: 100 MG (100 MG, 1 IN 1 D)
     Dates: start: 20010101, end: 20050101
  2. SYNTHROID [Concomitant]
  3. CARDIZEM [Concomitant]
  4. PROZAC [Concomitant]
  5. ESTRACE [Concomitant]
  6. ZYRTEC [Concomitant]
  7. METRONIDAZOLE [Concomitant]
  8. LOTREL [Concomitant]
  9. BEXTRA [Concomitant]
  10. ALPRAZOLAM [Concomitant]
  11. DITROPAN [Concomitant]
  12. CLARITIN [Concomitant]
  13. HYDROCORTISONE [Concomitant]
  14. ANTIBIOTICS (ANTIBIOTICS) [Concomitant]
  15. CARBAMAZEPINE [Concomitant]
  16. ALL OTHER THERAPEUTIC PRODUCTS (ALL OTHER THERAPEUTIC PRODUCTS) [Concomitant]
  17. DORYX [Concomitant]
  18. ZYPREXA [Concomitant]

REACTIONS (7)
  - FEELING JITTERY [None]
  - GALLBLADDER OPERATION [None]
  - INSOMNIA [None]
  - MALAISE [None]
  - NERVOUSNESS [None]
  - TREMOR [None]
  - WEIGHT FLUCTUATION [None]
